FAERS Safety Report 5340908-6 (Version None)
Quarter: 2007Q2

REPORT INFORMATION
  Report Type: 
  Country: None (occurrence: None)
  Receive Date: 20070531
  Receipt Date: 20070521
  Transmission Date: 20071010
  Serious: Yes (Hospitalization, Other)
  Sender: FDA-Public Use
  Company Number: US-MERCK-0704USA01184

PATIENT
  Age: 72 Year
  Sex: Female

DRUGS (1)
  1. FOSAMAX [Suspect]
     Indication: OSTEOPOROSIS
     Route: 048
     Dates: start: 19990725, end: 20050613

REACTIONS (9)
  - ANXIETY [None]
  - BONE DISORDER [None]
  - DENTAL CARIES [None]
  - DEPRESSION [None]
  - FEAR [None]
  - FIBROSIS [None]
  - HERPES ZOSTER [None]
  - JAW FRACTURE [None]
  - OSTEONECROSIS [None]
